FAERS Safety Report 23459557 (Version 2)
Quarter: 2024Q1

REPORT INFORMATION
  Report Type: Spontaneous
  Country: ES (occurrence: ES)
  Receive Date: 20240131
  Receipt Date: 20240312
  Transmission Date: 20240410
  Serious: Yes (Death)
  Sender: FDA-Public Use
  Company Number: ES-LEO Pharma-367098

PATIENT
  Age: 78 Year
  Sex: Male

DRUGS (2)
  1. ENSTILAR [Suspect]
     Active Substance: BETAMETHASONE DIPROPIONATE\CALCIPOTRIENE HYDRATE
     Indication: Pustular psoriasis
     Dates: start: 20220208, end: 20220831
  2. ATEZOLIZUMAB [Suspect]
     Active Substance: ATEZOLIZUMAB
     Indication: Bladder transitional cell carcinoma
     Dates: start: 202201

REACTIONS (2)
  - Metastatic neoplasm [Fatal]
  - Product use in unapproved indication [Unknown]
